FAERS Safety Report 10388870 (Version 1)
Quarter: 2014Q1

REPORT INFORMATION
  Report Type: Spontaneous
  Country: US (occurrence: None)
  Receive Date: 20140306
  Receipt Date: 20140306
  Transmission Date: 20141002
  Serious: Yes (Hospitalization)
  Sender: FDA-Public Use
  Company Number: 163-21880-13071414

PATIENT
  Age: 82 Year
  Sex: Female

DRUGS (17)
  1. REVLIMID (LENALIDOMIDE) (25 MILLIGRAM, CAPSULES) [Suspect]
     Indication: PLASMA CELL MYELOMA
     Dosage: 25 MG, 21 IN 21 D, PO
     Route: 048
     Dates: start: 20130531, end: 20130615
  2. DEXAMETHASONE (DEXAMETHASONE) [Concomitant]
  3. ASPIRIN (ACETYLSALICYLIC ACID) [Concomitant]
  4. GABAPENTIN (GABAPENTIN) [Concomitant]
  5. GLUCOPHAGE (METFORMIN) [Concomitant]
  6. MIRALAX (MACROGOL) [Concomitant]
  7. LALNOXIN (DIGOXIN) [Concomitant]
  8. LANTUS (INSULIN GLARGINE) [Concomitant]
  9. PROZAC (FLUOXETINE HYDROCHLORIDE) [Concomitant]
  10. SIMVASTATIN (SIMVASTATIN) [Concomitant]
  11. DIAMOX (ACETAZOLAMIDE) [Concomitant]
  12. KCL (POTASSIUM CHLORIDE) [Concomitant]
  13. MULTIVITAMINS (MULTIVITAMINS) [Concomitant]
  14. VITAMIN C (ASCORBIC ACID) [Concomitant]
  15. VITAMIN C (ASCORBIC ACID) [Concomitant]
  16. VITAMIN D (ERGOCALCIFEROL) [Concomitant]
  17. BIOFREEZE (MENTHOL) [Concomitant]

REACTIONS (3)
  - Pancytopenia [None]
  - Anaemia [None]
  - Thrombocytopenia [None]
